FAERS Safety Report 17797217 (Version 1)
Quarter: 2020Q2

REPORT INFORMATION
  Report Type: Spontaneous
  Country: AT (occurrence: AT)
  Receive Date: 20200518
  Receipt Date: 20200518
  Transmission Date: 20200714
  Serious: Yes (Other)
  Sender: FDA-Public Use
  Company Number: AT-GLAXOSMITHKLINE-AT2020EME081020

PATIENT
  Sex: Female

DRUGS (2)
  1. ZEJULA [Suspect]
     Active Substance: NIRAPARIB
     Indication: OVARIAN CANCER
     Dosage: 300 MG, QD
     Dates: start: 20190801
  2. ZEJULA [Suspect]
     Active Substance: NIRAPARIB
     Dosage: 200 MG, QD
     Dates: end: 202004

REACTIONS (2)
  - Thrombocytopenia [Unknown]
  - Malignant neoplasm progression [Unknown]
